FAERS Safety Report 10975614 (Version 3)
Quarter: 2015Q2

REPORT INFORMATION
  Report Type: Spontaneous
  Country: US (occurrence: US)
  Receive Date: 20150401
  Receipt Date: 20150422
  Transmission Date: 20150821
  Serious: No
  Sender: FDA-Public Use
  Company Number: US-EISAI MEDICAL RESEARCH-EC-2015-005345

PATIENT
  Age: 44 Year
  Sex: Female
  Weight: 91.6 kg

DRUGS (4)
  1. PRISTIQ EXTENDED RELEASE [Interacting]
     Active Substance: DESVENLAFAXINE SUCCINATE
     Indication: DEPRESSION
     Dosage: UNKNOWN
     Route: 065
  2. LAMICTAL [Concomitant]
     Active Substance: LAMOTRIGINE
     Indication: DEPRESSION
     Dosage: UNKNOWN
  3. BELVIQ [Suspect]
     Active Substance: LORCASERIN HYDROCHLORIDE
     Indication: WEIGHT DECREASED
     Route: 048
     Dates: start: 20150311, end: 201503
  4. BELVIQ [Interacting]
     Active Substance: LORCASERIN HYDROCHLORIDE
     Route: 048
     Dates: start: 201503, end: 20150325

REACTIONS (5)
  - Irritability [Recovering/Resolving]
  - Drug interaction [Recovering/Resolving]
  - Headache [Recovering/Resolving]
  - Pain in extremity [Recovered/Resolved]
  - Dizziness [Unknown]

NARRATIVE: CASE EVENT DATE: 201503
